FAERS Safety Report 8291165-2 (Version None)
Quarter: 2012Q2

REPORT INFORMATION
  Report Type: 
  Country: None (occurrence: None)
  Receive Date: 20120417
  Receipt Date: 20120411
  Transmission Date: 20120825
  Serious: Yes (Life-Threatening, Hospitalization, Disabling, Other)
  Sender: FDA-Public Use
  Company Number: JP-MERCK-1203USA03027

PATIENT
  Age: 62 Year
  Sex: Female
  Weight: 43 kg

DRUGS (2)
  1. PRAVASTATIN SODIUM [Concomitant]
     Route: 048
     Dates: start: 20080903, end: 20120304
  2. COZAAR [Suspect]
     Route: 048
     Dates: start: 20120222, end: 20120304

REACTIONS (3)
  - DECREASED APPETITE [None]
  - HEPATIC FUNCTION ABNORMAL [None]
  - DISSEMINATED INTRAVASCULAR COAGULATION [None]
